FAERS Safety Report 13408817 (Version 1)
Quarter: 2017Q2

REPORT INFORMATION
  Report Type: Spontaneous
  Country: US (occurrence: US)
  Receive Date: 20170406
  Receipt Date: 20170406
  Transmission Date: 20170830
  Serious: Yes (Other)
  Sender: FDA-Public Use
  Company Number: None

PATIENT
  Age: 43 Year
  Sex: Female
  Weight: 65.25 kg

DRUGS (8)
  1. MULTIVITAMIN [Concomitant]
     Active Substance: VITAMINS
  2. LYSINE [Concomitant]
     Active Substance: LYSINE
  3. CALCIUM [Concomitant]
     Active Substance: CALCIUM
  4. ADVIL [Suspect]
     Active Substance: IBUPROFEN
     Indication: HEADACHE
     Dosage: ?          QUANTITY:1 TABLET(S);?
     Route: 048
     Dates: start: 20170404, end: 20170404
  5. FLONASE [Concomitant]
     Active Substance: FLUTICASONE PROPIONATE
  6. MAGNESIUM [Concomitant]
     Active Substance: MAGNESIUM
  7. PROBIOTIC [Concomitant]
     Active Substance: PROBIOTICS NOS
  8. D [Concomitant]

REACTIONS (1)
  - Palpitations [None]

NARRATIVE: CASE EVENT DATE: 20170404
